FAERS Safety Report 4859267-8 (Version None)
Quarter: 2005Q4

REPORT INFORMATION
  Report Type: 
  Country: None (occurrence: None)
  Receive Date: 20051219
  Receipt Date: 20041109
  Transmission Date: 20060501
  Serious: No
  Sender: FDA-Public Use
  Company Number: US-GLAXOSMITHKLINE-A0533172A

PATIENT
  Age: 55 Year
  Sex: Female

DRUGS (2)
  1. EQUATE NTS 14MG [Suspect]
     Dates: start: 20041109
  2. ZYBAN [Concomitant]

REACTIONS (2)
  - APPLICATION SITE ERYTHEMA [None]
  - THERMAL BURN [None]
